FAERS Safety Report 9919519 (Version 3)
Quarter: 2014Q3

REPORT INFORMATION
  Report Type: Spontaneous
  Country: ES (occurrence: ES)
  Receive Date: 20140224
  Receipt Date: 20140929
  Transmission Date: 20150326
  Serious: Yes (Other)
  Sender: FDA-Public Use
  Company Number: ES-VERTEX PHARMACEUTICALS INC-2014-000898

PATIENT

DRUGS (3)
  1. INCIVO [Suspect]
     Active Substance: TELAPREVIR
     Indication: HEPATITIS C
     Route: 065
  2. PEGYLATED INTERFERON ALPHA NOS [Suspect]
     Active Substance: PEGINTERFERON ALFA-2A OR PEGINTERFERON ALFA-2B
     Indication: HEPATITIS C
     Dosage: UNK
     Route: 065
  3. RIBAVIRIN. [Suspect]
     Active Substance: RIBAVIRIN
     Indication: HEPATITIS C
     Route: 065

REACTIONS (33)
  - Abdominal pain [Unknown]
  - Weight decreased [Unknown]
  - Dyspepsia [Unknown]
  - Adverse event [Unknown]
  - Skin disorder [Unknown]
  - Dry skin [Unknown]
  - Pancreatitis [Unknown]
  - Leukopenia [Unknown]
  - Nervous system disorder [Unknown]
  - Metabolic disorder [Unknown]
  - Asthenia [Unknown]
  - Cholecystitis [Unknown]
  - Retinal detachment [Unknown]
  - Thrombocytopenia [Unknown]
  - Anaemia [Unknown]
  - Eczema [Unknown]
  - Haemorrhoids [Unknown]
  - Anorectal disorder [Unknown]
  - Infection [Unknown]
  - Drug intolerance [Unknown]
  - Vomiting [Unknown]
  - Gastrointestinal disorder [Unknown]
  - Psoriasis [Unknown]
  - Oral candidiasis [Unknown]
  - Dermatitis [Unknown]
  - Nausea [Unknown]
  - Neutropenia [Unknown]
  - Depression [Unknown]
  - Alopecia [Unknown]
  - Lymphopenia [Unknown]
  - Erythema [Unknown]
  - Pruritus [Unknown]
  - Diarrhoea [Unknown]
